FAERS Safety Report 20834142 (Version 1)
Quarter: 2022Q2

REPORT INFORMATION
  Report Type: Spontaneous
  Country: US (occurrence: None)
  Receive Date: 20220514
  Receipt Date: 20220514
  Transmission Date: 20220720
  Serious: Yes (Other)
  Sender: FDA-Public Use
  Company Number: None

PATIENT
  Age: 70 Year
  Sex: Female
  Weight: 92.25 kg

DRUGS (16)
  1. GABAPENTIN [Suspect]
     Active Substance: GABAPENTIN
     Indication: Pain in extremity
     Dosage: OTHER QUANTITY : 90 CAPSULE(S);?FREQUENCY : TWICE A DAY;?
     Route: 048
     Dates: start: 20220505, end: 20220511
  2. METFORMIN [Concomitant]
     Active Substance: METFORMIN HYDROCHLORIDE
  3. JANUVIA [Concomitant]
     Active Substance: SITAGLIPTIN PHOSPHATE
  4. JARDIANCE [Concomitant]
     Active Substance: EMPAGLIFLOZIN
  5. FAMOTIDINE [Concomitant]
     Active Substance: FAMOTIDINE
  6. PRAVASTATIN [Concomitant]
     Active Substance: PRAVASTATIN
  7. ENALAPRIL [Concomitant]
     Active Substance: ENALAPRIL
  8. LEVOTHYROXINE [Concomitant]
     Active Substance: LEVOTHYROXINE
  9. RABEPRAZOLE [Concomitant]
     Active Substance: RABEPRAZOLE
  10. VITAMINS [Concomitant]
     Active Substance: VITAMINS
  11. VITAMIN D3 [Concomitant]
     Active Substance: CHOLECALCIFEROL
  12. BIOTIN [Concomitant]
     Active Substance: BIOTIN
  13. MAGNESIUM [Concomitant]
     Active Substance: MAGNESIUM
  14. STOOL SOFTENER (DOCUSATE) [Concomitant]
     Active Substance: DOCUSATE
  15. MIRALAX [Concomitant]
     Active Substance: POLYETHYLENE GLYCOL 3350
  16. BENEFIBER [Concomitant]
     Active Substance: STARCH, WHEAT

REACTIONS (8)
  - Fall [None]
  - Pain [None]
  - Disorientation [None]
  - Injury [None]
  - Contusion [None]
  - Musculoskeletal chest pain [None]
  - Loss of consciousness [None]
  - Rib fracture [None]

NARRATIVE: CASE EVENT DATE: 20220508
